FAERS Safety Report 10169158 (Version 1)
Quarter: 2014Q2

REPORT INFORMATION
  Report Type: Spontaneous
  Country: US (occurrence: US)
  Receive Date: 20140513
  Receipt Date: 20140513
  Transmission Date: 20141212
  Serious: No
  Sender: FDA-Public Use
  Company Number: US-TARO-2014P1002368

PATIENT
  Age: 6 Year
  Sex: Male
  Weight: 39.46 kg

DRUGS (9)
  1. CETIRIZINE HCL CHILDREN ORAL SOLUTION ALLERGY 1MG/ML (SUGARFREE GRAPE) [Suspect]
     Indication: MULTIPLE ALLERGIES
     Route: 048
     Dates: start: 2008
  2. CETIRIZINE HCL CHILDREN ORAL SOLUTION ALLERGY 1MG/ML (SUGARFREE GRAPE) [Suspect]
     Indication: ASTHMA
     Route: 048
     Dates: start: 2008
  3. CETIRIZINE HCL CHILDREN ORAL SOLUTION ALLERGY 1MG/ML (SUGARFREE GRAPE) [Suspect]
     Indication: MULTIPLE ALLERGIES
     Route: 048
  4. CETIRIZINE HCL CHILDREN ORAL SOLUTION ALLERGY 1MG/ML (SUGARFREE GRAPE) [Suspect]
     Indication: ASTHMA
     Route: 048
  5. CETIRIZINE HCL CHILDREN ORAL SOLUTION ALLERGY 1MG/ML (SUGARFREE GRAPE) [Suspect]
     Indication: MULTIPLE ALLERGIES
     Route: 048
     Dates: start: 20140317, end: 20140317
  6. CETIRIZINE HCL CHILDREN ORAL SOLUTION ALLERGY 1MG/ML (SUGARFREE GRAPE) [Suspect]
     Indication: ASTHMA
     Route: 048
     Dates: start: 20140317, end: 20140317
  7. SINGULAIR [Concomitant]
  8. UNSPECIFIED VITAMINS [Concomitant]
  9. ALBUTEROL [Concomitant]

REACTIONS (3)
  - Accidental overdose [Recovered/Resolved]
  - Somnolence [Recovered/Resolved]
  - Agitation [Recovered/Resolved]
